FAERS Safety Report 5619155-6 (Version None)
Quarter: 2008Q1

REPORT INFORMATION
  Report Type: 
  Country: None (occurrence: None)
  Receive Date: 20080205
  Receipt Date: 20080126
  Transmission Date: 20080703
  Serious: Yes (Death)
  Sender: FDA-Public Use
  Company Number: 2007001007

PATIENT
  Age: 84 Year
  Sex: Male
  Weight: 81.6 kg

DRUGS (4)
  1. MACUGEN [Suspect]
     Indication: BLINDNESS
     Dosage: (ONCE), INTRA-VITREAL
     Dates: start: 20060215, end: 20060215
  2. ALPHAGAN [Concomitant]
  3. TIMOPTIC [Concomitant]
  4. VITAMIN B12 [Concomitant]

REACTIONS (7)
  - APNOEA [None]
  - FEELING ABNORMAL [None]
  - INCOHERENT [None]
  - INJECTION SITE PAIN [None]
  - MYOCARDIAL ISCHAEMIA [None]
  - RESPIRATORY FAILURE [None]
  - SUDDEN DEATH [None]
